FAERS Safety Report 16929351 (Version 1)
Quarter: 2019Q4

REPORT INFORMATION
  Report Type: Spontaneous
  Country: US (occurrence: US)
  Receive Date: 20191017
  Receipt Date: 20191017
  Transmission Date: 20200122
  Serious: No
  Sender: FDA-Public Use
  Company Number: US-TEVA-2019-US-1122204

PATIENT
  Age: 67 Year
  Sex: Female

DRUGS (1)
  1. PENICILLAMINE CAPSULES [Suspect]
     Active Substance: PENICILLAMINE
     Indication: HEPATO-LENTICULAR DEGENERATION
     Dosage: DOSE STRENGTH:  250
     Route: 065

REACTIONS (1)
  - Memory impairment [Unknown]
